FAERS Safety Report 8203693-6 (Version None)
Quarter: 2012Q1

REPORT INFORMATION
  Report Type: 
  Country: None (occurrence: None)
  Receive Date: 20120308
  Receipt Date: 20120223
  Transmission Date: 20120608
  Serious: Yes (Hospitalization)
  Sender: FDA-Public Use
  Company Number: 12TR004160

PATIENT
  Sex: Male
  Weight: 2.7 kg

DRUGS (2)
  1. VALPROIC ACID [Suspect]
     Dosage: 600 G, QD, TRANSPLACENTAL
     Route: 064
  2. PHENYTOIN [Concomitant]

REACTIONS (15)
  - DRUG WITHDRAWAL SYNDROME NEONATAL [None]
  - ASPARTATE AMINOTRANSFERASE INCREASED [None]
  - BRADYCARDIA NEONATAL [None]
  - USE OF ACCESSORY RESPIRATORY MUSCLES [None]
  - HYPOGLYCAEMIA NEONATAL [None]
  - PREMATURE BABY [None]
  - BLOOD CREATINE PHOSPHOKINASE INCREASED [None]
  - BLOOD LACTATE DEHYDROGENASE INCREASED [None]
  - DYSPNOEA [None]
  - HYPOTONIA NEONATAL [None]
  - BLOOD CREATINE PHOSPHOKINASE MB INCREASED [None]
  - MATERNAL DRUGS AFFECTING FOETUS [None]
  - CYANOSIS NEONATAL [None]
  - NEONATAL TACHYPNOEA [None]
  - AGITATION NEONATAL [None]
